FAERS Safety Report 11663386 (Version 2)
Quarter: 2015Q4

REPORT INFORMATION
  Report Type: Report from Study
  Country: US (occurrence: US)
  Receive Date: 20151027
  Receipt Date: 20151027
  Transmission Date: 20160304
  Serious: Yes (Other)
  Sender: FDA-Public Use
  Company Number: PHHY2014US133555

PATIENT
  Age: 54 Year
  Sex: Female
  Weight: 49 kg

DRUGS (3)
  1. SIMULECT [Suspect]
     Active Substance: BASILIXIMAB
     Indication: RENAL TRANSPLANT
     Dosage: 20 MG, BID
     Route: 042
     Dates: start: 20130509
  2. SIMULECT [Suspect]
     Active Substance: BASILIXIMAB
     Dosage: 20 MG, BID
     Route: 042
     Dates: start: 20130513, end: 20130513
  3. TACROLIMUS. [Suspect]
     Active Substance: TACROLIMUS
     Indication: RENAL TRANSPLANT
     Dosage: 2 MG, QD
     Route: 048
     Dates: start: 20130826

REACTIONS (1)
  - BK virus infection [Not Recovered/Not Resolved]

NARRATIVE: CASE EVENT DATE: 20140814
